FAERS Safety Report 7723053-1 (Version None)
Quarter: 2011Q3

REPORT INFORMATION
  Report Type: 
  Country: None (occurrence: None)
  Receive Date: 20110826
  Receipt Date: 20110811
  Transmission Date: 20111222
  Serious: Yes (Hospitalization, Other)
  Sender: FDA-Public Use
  Company Number: DSJ-2011-17064

PATIENT
  Sex: Female

DRUGS (3)
  1. ATENOLOL [Suspect]
     Indication: HYPERTENSION
     Dosage: 50 MG, PER ORAL
     Route: 048
     Dates: start: 20110101
  2. CLOXAZOLAM (CLOXAZOLAM) (CLOXAZOLAM) [Suspect]
     Dosage: 1 MG, PER ORAL
     Route: 048
     Dates: start: 20110101
  3. BENICAR [Suspect]
     Indication: HYPERTENSION
     Dosage: 20 MG (20 MG, 1 IN 1 D), PER ORAL
     Route: 048
     Dates: end: 20110101

REACTIONS (5)
  - BLOOD PRESSURE SYSTOLIC INCREASED [None]
  - EYE PAIN [None]
  - DRUG INEFFECTIVE [None]
  - CATARACT [None]
  - INTRAOCULAR PRESSURE INCREASED [None]
